FAERS Safety Report 16616366 (Version 1)
Quarter: 2019Q3

REPORT INFORMATION
  Report Type: Spontaneous
  Country: PL (occurrence: PL)
  Receive Date: 20190723
  Receipt Date: 20190723
  Transmission Date: 20191004
  Serious: Yes (Life-Threatening)
  Sender: FDA-Public Use
  Company Number: PL-ASTRAZENECA-2019SF03928

PATIENT
  Age: 56 Year
  Sex: Male
  Weight: 114 kg

DRUGS (1)
  1. BRILIQUE [Suspect]
     Active Substance: TICAGRELOR
     Indication: ACUTE MYOCARDIAL INFARCTION
     Dosage: 180.0MG UNKNOWN
     Route: 048
     Dates: start: 20151206, end: 20151206

REACTIONS (5)
  - Laryngeal oedema [Recovered/Resolved]
  - Palatal oedema [Recovered/Resolved]
  - Mouth swelling [Recovered/Resolved]
  - Asphyxia [Recovered/Resolved]
  - Tongue oedema [Recovered/Resolved]

NARRATIVE: CASE EVENT DATE: 20151206
